FAERS Safety Report 10036231 (Version 1)
Quarter: 2014Q1

REPORT INFORMATION
  Report Type: Spontaneous
  Country: IT (occurrence: IT)
  Receive Date: 20140325
  Receipt Date: 20140325
  Transmission Date: 20141002
  Serious: Yes (Hospitalization)
  Sender: FDA-Public Use
  Company Number: IT-WATSON-2014-05561

PATIENT
  Age: 67 Year
  Sex: Female

DRUGS (2)
  1. AMOXICILLIN (UNKNOWN) [Suspect]
     Indication: HELICOBACTER INFECTION
     Dosage: UNK
     Route: 048
     Dates: start: 20140220, end: 20140228
  2. CLARITHROMYCIN (UNKNOWN) [Suspect]
     Indication: HELICOBACTER INFECTION
     Dosage: UNK
     Route: 048
     Dates: start: 20140220, end: 20140228

REACTIONS (2)
  - Erythema [Recovering/Resolving]
  - Pruritus [Recovering/Resolving]
